FAERS Safety Report 10208923 (Version 1)
Quarter: 2014Q2

REPORT INFORMATION
  Report Type: Spontaneous
  Country: DE (occurrence: DE)
  Receive Date: 20140530
  Receipt Date: 20140530
  Transmission Date: 20141212
  Serious: Yes (Other)
  Sender: FDA-Public Use
  Company Number: DE-ABBVIE-14P-062-1241213-00

PATIENT
  Sex: Female

DRUGS (12)
  1. HUMIRA [Suspect]
     Indication: JUVENILE IDIOPATHIC ARTHRITIS
     Route: 058
     Dates: start: 20070623, end: 20140201
  2. METHOTREXATE [Concomitant]
     Indication: PRODUCT USED FOR UNKNOWN INDICATION
     Dates: end: 201402
  3. FOLIC ACID [Concomitant]
     Indication: PRODUCT USED FOR UNKNOWN INDICATION
     Dates: end: 201402
  4. PIROXICAM [Concomitant]
     Indication: PRODUCT USED FOR UNKNOWN INDICATION
     Dates: end: 201402
  5. PIROXICAM [Concomitant]
     Dates: start: 2014
  6. CORTISON [Concomitant]
     Indication: PRODUCT USED FOR UNKNOWN INDICATION
     Dates: end: 2014
  7. CORTISON [Concomitant]
     Dosage: INCREASED DOSE
     Dates: start: 2014
  8. XUSAL [Concomitant]
     Indication: PRODUCT USED FOR UNKNOWN INDICATION
  9. AMITRIPTYLIN [Concomitant]
     Indication: PRODUCT USED FOR UNKNOWN INDICATION
  10. PANTOZOL [Concomitant]
     Indication: PRODUCT USED FOR UNKNOWN INDICATION
  11. LYRICA [Concomitant]
     Indication: PRODUCT USED FOR UNKNOWN INDICATION
  12. LIMPTAR N [Concomitant]
     Indication: PRODUCT USED FOR UNKNOWN INDICATION

REACTIONS (6)
  - Meniscus injury [Unknown]
  - Migraine [Unknown]
  - Peripheral swelling [Unknown]
  - Arthritis [Recovering/Resolving]
  - Hypertension [Unknown]
  - Impaired healing [Unknown]
